FAERS Safety Report 9116331 (Version 3)
Quarter: 2014Q1

REPORT INFORMATION
  Report Type: Spontaneous
  Country: US (occurrence: US)
  Receive Date: 20130225
  Receipt Date: 20140224
  Transmission Date: 20141002
  Serious: Yes (Other)
  Sender: FDA-Public Use
  Company Number: US-PFIZER INC-2013066136

PATIENT
  Age: 55 Year
  Sex: Female
  Weight: 73.47 kg

DRUGS (2)
  1. PREMARIN [Suspect]
     Indication: HORMONE REPLACEMENT THERAPY
     Dosage: 1 DF, 1X/DAY
     Route: 048
     Dates: start: 200905
  2. VIIBRYD [Concomitant]
     Indication: DEPRESSION
     Dosage: UNK

REACTIONS (4)
  - Pulmonary embolism [Unknown]
  - Myocardial infarction [Unknown]
  - Hand fracture [Unknown]
  - Wrist fracture [Unknown]
